FAERS Safety Report 4490259-7 (Version None)
Quarter: 2004Q4

REPORT INFORMATION
  Report Type: 
  Country: None (occurrence: None)
  Receive Date: 20041028
  Receipt Date: 20041018
  Transmission Date: 20050328
  Serious: Yes (Other)
  Sender: FDA-Public Use
  Company Number: 2004064593

PATIENT
  Age: 53 Year
  Sex: Male
  Weight: 81.6475 kg

DRUGS (2)
  1. LIPITOR [Suspect]
     Indication: BLOOD CHOLESTEROL INCREASED
     Dosage: 20 MG (20MG , 1 IN 1 D), ORAL
     Route: 048
     Dates: end: 20040728
  2. SUMATRIPTAN SUCCINATE [Concomitant]

REACTIONS (14)
  - CHOLECYSTITIS [None]
  - DERMATITIS EXFOLIATIVE [None]
  - DIARRHOEA [None]
  - HEPATITIS [None]
  - JAUNDICE CHOLESTATIC [None]
  - LATEX ALLERGY [None]
  - MIDDLE INSOMNIA [None]
  - PANCREATIC CARCINOMA [None]
  - PRURITUS [None]
  - PRURITUS GENERALISED [None]
  - SCRATCH [None]
  - SKIN BLEEDING [None]
  - SUICIDAL IDEATION [None]
  - WEIGHT DECREASED [None]
